FAERS Safety Report 4766687-9 (Version None)
Quarter: 2005Q3

REPORT INFORMATION
  Report Type: 
  Country: None (occurrence: None)
  Receive Date: 20050909
  Receipt Date: 20050829
  Transmission Date: 20060218
  Serious: Yes (Other)
  Sender: FDA-Public Use
  Company Number: 05-08-1487

PATIENT
  Age: 43 Year
  Sex: Female

DRUGS (2)
  1. CLOZAPINE [Suspect]
     Dosage: 25-475MG QD, ORAL
     Route: 048
     Dates: start: 20050401, end: 20050801
  2. CHEMOTHERAPY (METHYLDOPA) [Suspect]
     Indication: BREAST CANCER

REACTIONS (1)
  - LEUKOPENIA [None]
